FAERS Safety Report 4409595-5 (Version None)
Quarter: 2004Q3

REPORT INFORMATION
  Report Type: 
  Country: None (occurrence: None)
  Receive Date: 20040726
  Receipt Date: 20040719
  Transmission Date: 20050211
  Serious: Yes (Hospitalization)
  Sender: FDA-Public Use
  Company Number: FRWYE912019JUL04

PATIENT
  Age: 56 Year
  Sex: Female

DRUGS (5)
  1. SOPROL (BISOPROLOL, TABLET, 0) [Suspect]
     Dosage: 5 MG 1X PER 1 DAY ORAL
     Route: 048
     Dates: end: 20040414
  2. LEXOMIL (BROMAZEPAM, ,0) [Suspect]
     Dosage: ORAL
     Route: 048
  3. ZINNAT (CEFUROXIME AXETIL, ,0) [Suspect]
     Dosage: ORAL
     Route: 048
     Dates: start: 20020101
  4. AMBROXOL (AMBROXOL) [Concomitant]
  5. SOLUPRED (PREDNISOLONE SODIUM SULFOBENZOATE) [Concomitant]

REACTIONS (2)
  - APLASTIC ANAEMIA [None]
  - BONE MARROW DEPRESSION [None]
